FAERS Safety Report 24937822 (Version 1)
Quarter: 2025Q1

REPORT INFORMATION
  Report Type: Spontaneous
  Country: IQ (occurrence: IQ)
  Receive Date: 20250206
  Receipt Date: 20250206
  Transmission Date: 20250408
  Serious: Yes (Other)
  Sender: JUBILANT
  Company Number: IQ-JUBILANT CADISTA PHARMACEUTICALS-2025JUB00009

PATIENT
  Age: 29 Year
  Sex: Female

DRUGS (3)
  1. LAMOTRIGINE [Suspect]
     Active Substance: LAMOTRIGINE
     Indication: Myoclonic epilepsy
     Dosage: 25 MG, 2X/DAY
  2. LAMOTRIGINE [Suspect]
     Active Substance: LAMOTRIGINE
     Indication: Focal dyscognitive seizures
     Dosage: 50 MG, 2X/DAY
  3. LEVETIRACETAM [Concomitant]
     Active Substance: LEVETIRACETAM
     Dosage: HALF TABLET 2X/DAY FOR THE FIRST WEEK

REACTIONS (2)
  - Cholecystitis [Recovered/Resolved]
  - Drug reaction with eosinophilia and systemic symptoms [Recovered/Resolved]
